FAERS Safety Report 5625465-9 (Version None)
Quarter: 2008Q1

REPORT INFORMATION
  Report Type: 
  Country: None (occurrence: None)
  Receive Date: 20080208
  Receipt Date: 20080201
  Transmission Date: 20080703
  Serious: Yes (Other)
  Sender: FDA-Public Use
  Company Number: 2008002967

PATIENT
  Age: 44 Year
  Sex: Female
  Weight: 54.4 kg

DRUGS (3)
  1. ROGAINE [Suspect]
     Indication: ALOPECIA
     Dosage: TWICE A DAY, TOPICAL
     Route: 061
     Dates: start: 20070813
  2. MULTI-VITAMINS [Concomitant]
  3. GLUCOSAMINE (GLUCOSAMINE) [Concomitant]

REACTIONS (2)
  - HIP ARTHROPLASTY [None]
  - PAIN IN EXTREMITY [None]
